FAERS Safety Report 6988266-5 (Version None)
Quarter: 2010Q3

REPORT INFORMATION
  Report Type: 
  Country: None (occurrence: None)
  Receive Date: 20100916
  Receipt Date: 20100907
  Transmission Date: 20110219
  Serious: Yes (Other)
  Sender: FDA-Public Use
  Company Number: JP-JNJFOC-20100802756

PATIENT
  Sex: Female
  Weight: 44 kg

DRUGS (27)
  1. DUROTEP [Suspect]
     Indication: INTERVERTEBRAL DISC PROTRUSION
     Route: 062
  2. DUROTEP [Suspect]
     Route: 062
  3. DUROTEP [Suspect]
     Route: 062
  4. DUROTEP [Suspect]
     Route: 062
  5. DUROTEP [Suspect]
     Indication: PAIN
     Route: 062
  6. DUROTEP [Suspect]
     Route: 062
  7. DUROTEP [Suspect]
     Route: 062
  8. DUROTEP [Suspect]
     Route: 062
  9. CODEINE PHOSPHATE [Suspect]
     Indication: PAIN
     Route: 048
  10. HACHIMI-JIO-GAN [Concomitant]
     Indication: INTERVERTEBRAL DISC PROTRUSION
     Dosage: 7.5
     Route: 048
  11. NOVAMIN [Concomitant]
     Indication: NAUSEA
     Route: 048
  12. THYRADIN S [Concomitant]
     Indication: AUTOIMMUNE THYROIDITIS
     Route: 048
  13. ASPIRIN [Concomitant]
     Indication: CEREBRAL ARTERIOSCLEROSIS
     Route: 048
  14. TAKEPRON [Concomitant]
     Indication: REFLUX OESOPHAGITIS
     Route: 048
  15. SEFTAC [Concomitant]
     Indication: GASTRITIS
     Route: 048
  16. LENDORMIN D [Concomitant]
     Indication: INSOMNIA
     Route: 048
  17. ALOSENN [Concomitant]
     Indication: CONSTIPATION
     Route: 048
  18. MYONAL [Concomitant]
     Indication: INTERVERTEBRAL DISC PROTRUSION
     Route: 048
  19. NASONEX [Concomitant]
     Indication: RHINITIS ALLERGIC
     Route: 045
  20. KETOPROFEN [Concomitant]
     Indication: INTERVERTEBRAL DISC PROTRUSION
     Route: 054
  21. NERIPROCT [Concomitant]
     Indication: HAEMORRHOIDS
     Route: 054
  22. GASRICK D [Concomitant]
     Indication: GASTRITIS
     Route: 048
  23. HOCHU-EKKI-TO [Concomitant]
  24. LAXOBERON [Concomitant]
  25. ACTIT [Concomitant]
  26. ONEALFA [Concomitant]
  27. NAUZELIN [Concomitant]
     Indication: NAUSEA
     Route: 048

REACTIONS (7)
  - DECREASED APPETITE [None]
  - DEPRESSION [None]
  - DYSPHORIA [None]
  - DYSPNOEA [None]
  - NAUSEA [None]
  - PARKINSONISM [None]
  - SOMNOLENCE [None]
